FAERS Safety Report 12276618 (Version 1)
Quarter: 2016Q2

REPORT INFORMATION
  Report Type: Spontaneous
  Country: US (occurrence: None)
  Receive Date: 20160415
  Receipt Date: 20160415
  Transmission Date: 20160815
  Serious: Yes (Other)
  Sender: FDA-Public Use
  Company Number: None

PATIENT
  Age: 22 Year
  Sex: Female
  Weight: 60.33 kg

DRUGS (3)
  1. VITAMIN B12 [Concomitant]
     Active Substance: CYANOCOBALAMIN
  2. SERTRALINE 100 MG TAB, 100 MG PUBLIX PHARMACY [Suspect]
     Active Substance: SERTRALINE HYDROCHLORIDE
     Indication: SOCIAL ANXIETY DISORDER
     Dosage: 1 TABLET(S) IN THE MORNING TAKEN BY MOUTH
     Route: 048
     Dates: start: 20160210, end: 20160315
  3. PANTOGAR [Concomitant]
     Active Substance: AMINOBENZOIC ACID\CALCIUM PANTOTHENATE\CYSTINE\KERATIN\THIAMINE MONONITRATE

REACTIONS (12)
  - Asthenia [None]
  - Mood swings [None]
  - Product quality issue [None]
  - Fatigue [None]
  - Anxiety [None]
  - Panic attack [None]
  - Paranoia [None]
  - Activities of daily living impaired [None]
  - Apathy [None]
  - Heart rate increased [None]
  - Fear [None]
  - Suicidal ideation [None]

NARRATIVE: CASE EVENT DATE: 20160220
